FAERS Safety Report 17026522 (Version 1)
Quarter: 2019Q4

REPORT INFORMATION
  Report Type: Spontaneous
  Country: US (occurrence: US)
  Receive Date: 20191113
  Receipt Date: 20191113
  Transmission Date: 20200122
  Serious: Yes (Other)
  Sender: FDA-Public Use
  Company Number: US-PFIZER INC-2019486727

PATIENT
  Age: 51 Year
  Sex: Female
  Weight: 92.99 kg

DRUGS (3)
  1. LOSARTAN. [Concomitant]
     Active Substance: LOSARTAN
     Dosage: 25 MG, 1X/DAY
     Route: 048
     Dates: start: 20151204
  2. CHANTIX [Suspect]
     Active Substance: VARENICLINE TARTRATE
     Indication: SMOKING CESSATION THERAPY
     Dosage: UNK, (STARTER PACK TAKEN TWICE DAILY AS PRESCRIBED; THEN CONTINUATION PACK MAYBE 2-3 TIMES DAILY)
     Dates: start: 20151013
  3. METFORMIN [Concomitant]
     Active Substance: METFORMIN HYDROCHLORIDE
     Indication: DIABETES MELLITUS
     Dosage: 500 MG, 1X/DAY
     Route: 048
     Dates: start: 20170206

REACTIONS (6)
  - Anger [Unknown]
  - Intentional product use issue [Unknown]
  - Disturbance in attention [Unknown]
  - Crying [Unknown]
  - Aggression [Recovered/Resolved]
  - Drug dependence [Unknown]
